FAERS Safety Report 6356449-3 (Version None)
Quarter: 2009Q3

REPORT INFORMATION
  Report Type: 
  Country: None (occurrence: None)
  Receive Date: 20090915
  Receipt Date: 20090909
  Transmission Date: 20100115
  Serious: Yes (Life-Threatening, Hospitalization, Disabling, Other)
  Sender: FDA-Public Use
  Company Number: A0806557A

PATIENT
  Age: 9 Year
  Sex: Male

DRUGS (2)
  1. AUGMENTIN ES-600 [Suspect]
     Dosage: 1.5TSP TWICE PER DAY
     Route: 048
     Dates: start: 20090605, end: 20090615
  2. TYLENOL (CAPLET) [Concomitant]

REACTIONS (4)
  - HEPATOTOXICITY [None]
  - LIVER TRANSPLANT [None]
  - PYREXIA [None]
  - SCLERAL DISCOLOURATION [None]
